FAERS Safety Report 11509736 (Version 1)
Quarter: 2015Q3

REPORT INFORMATION
  Report Type: Spontaneous
  Country: US (occurrence: US)
  Receive Date: 20150915
  Receipt Date: 20150915
  Transmission Date: 20151125
  Serious: Yes (Hospitalization, Other)
  Sender: FDA-Public Use
  Company Number: US-JNJFOC-20150111666

PATIENT
  Age: 40 Year
  Sex: Male
  Weight: 61.24 kg

DRUGS (1)
  1. TYLOX [Suspect]
     Active Substance: ACETAMINOPHEN\OXYCODONE HYDROCHLORIDE
     Indication: DRUG ABUSE
     Dosage: 5-6 G
     Route: 065
     Dates: start: 20091003, end: 20091003

REACTIONS (7)
  - Dizziness [Recovering/Resolving]
  - Tremor [Recovering/Resolving]
  - Drug abuse [Recovering/Resolving]
  - Chest pain [Recovering/Resolving]
  - Intentional overdose [Recovering/Resolving]
  - Transaminases increased [Recovering/Resolving]
  - Vomiting [Recovering/Resolving]

NARRATIVE: CASE EVENT DATE: 200910
